FAERS Safety Report 7027952-8 (Version None)
Quarter: 2010Q4

REPORT INFORMATION
  Report Type: 
  Country: None (occurrence: None)
  Receive Date: 20101005
  Receipt Date: 20100903
  Transmission Date: 20110411
  Serious: No
  Sender: FDA-Public Use
  Company Number: US-BAYER-201029186NA

PATIENT
  Sex: Female

DRUGS (1)
  1. MIRENA [Suspect]
     Indication: PRODUCT USED FOR UNKNOWN INDICATION
     Dosage: FREQUENCY: CONTINUOUS. MIRENA EXPELLED HAD ONE OF THE ARMS BROKEN OFF
     Route: 015
     Dates: end: 20100101

REACTIONS (1)
  - DEVICE EXPULSION [None]
